FAERS Safety Report 6223506-1 (Version None)
Quarter: 2009Q2

REPORT INFORMATION
  Report Type: 
  Country: None (occurrence: None)
  Receive Date: 20090610
  Receipt Date: 20090527
  Transmission Date: 20091009
  Serious: Yes (Hospitalization)
  Sender: FDA-Public Use
  Company Number: 235297K09USA

PATIENT
  Age: 44 Year
  Sex: Female
  Weight: 78 kg

DRUGS (22)
  1. REBIF [Suspect]
     Indication: MULTIPLE SCLEROSIS
     Dosage: 44 MCG, 3 IN 1 WEEKS, SUBCUTANEOUS
     Route: 058
     Dates: start: 20080414, end: 20090512
  2. REBIF [Suspect]
     Indication: MULTIPLE SCLEROSIS
     Dosage: 44 MCG, 3 IN 1 WEEKS, SUBCUTANEOUS
     Route: 058
     Dates: start: 20090512
  3. MESTINON [Concomitant]
  4. CELLCEPT [Concomitant]
  5. LITHIUM CARBONATE [Concomitant]
  6. KLONOPIN [Concomitant]
  7. PREDNISONE (PREDNISONE /00044701/) [Concomitant]
  8. IMITREX [Concomitant]
  9. PREVACID [Concomitant]
  10. RESTORIL [Concomitant]
  11. AMANTADINE HCL [Concomitant]
  12. MIRALAX [Concomitant]
  13. REMERON [Concomitant]
  14. FIORICET [Concomitant]
  15. GOLYTELY (GOLYTELY) [Concomitant]
  16. COMBIVENT [Concomitant]
  17. FLONASE [Concomitant]
  18. ZANTAC 150 [Concomitant]
  19. BENTYL [Concomitant]
  20. CELEBREX [Concomitant]
  21. COMPAZINE [Concomitant]
  22. LASIX (FUROSEMIDE /00032601/) [Concomitant]

REACTIONS (9)
  - ANXIETY [None]
  - CONDITION AGGRAVATED [None]
  - CONVERSION DISORDER [None]
  - DEPRESSION [None]
  - FEAR [None]
  - HALLUCINATIONS, MIXED [None]
  - RELAPSING-REMITTING MULTIPLE SCLEROSIS [None]
  - SUICIDAL IDEATION [None]
  - WEIGHT DECREASED [None]
